FAERS Safety Report 21759279 (Version 4)
Quarter: 2024Q4

REPORT INFORMATION
  Report Type: Spontaneous
  Country: US (occurrence: US)
  Receive Date: 20221221
  Receipt Date: 20241015
  Transmission Date: 20250115
  Serious: No
  Sender: BIOGEN
  Company Number: US-BIOGEN-2022BI01104634

PATIENT
  Age: 66 Year
  Sex: Female

DRUGS (3)
  1. TYSABRI [Suspect]
     Active Substance: NATALIZUMAB
     Indication: Multiple sclerosis
     Dosage: INFUSED OVER 1 HOUR
     Route: 050
     Dates: start: 20190308, end: 20190708
  2. TYSABRI [Suspect]
     Active Substance: NATALIZUMAB
     Route: 050
     Dates: start: 20220322, end: 20220719
  3. TYSABRI [Suspect]
     Active Substance: NATALIZUMAB
     Route: 050
     Dates: start: 20220613, end: 20220719

REACTIONS (15)
  - Multiple sclerosis [Not Recovered/Not Resolved]
  - Mobility decreased [Not Recovered/Not Resolved]
  - Memory impairment [Not Recovered/Not Resolved]
  - Visual acuity reduced [Not Recovered/Not Resolved]
  - Musculoskeletal disorder [Unknown]
  - Communication disorder [Unknown]
  - Constipation [Unknown]
  - Back pain [Unknown]
  - Tremor [Not Recovered/Not Resolved]
  - Anxiety [Unknown]
  - Urticaria [Unknown]
  - Urinary tract infection [Recovered/Resolved]
  - Multiple sclerosis relapse [Unknown]
  - Hypersensitivity [Unknown]
  - Muscle spasms [Unknown]

NARRATIVE: CASE EVENT DATE: 20220613
